FAERS Safety Report 10057981 (Version 1)
Quarter: 2014Q2

REPORT INFORMATION
  Report Type: Spontaneous
  Country: US (occurrence: None)
  Receive Date: 20140403
  Receipt Date: 20140403
  Transmission Date: 20141212
  Serious: Yes (Hospitalization)
  Sender: FDA-Public Use
  Company Number: None

PATIENT
  Age: 64 Year
  Sex: Female
  Weight: 81.65 kg

DRUGS (2)
  1. SPINAL ANESTHESIA TRAY [Suspect]
     Indication: SPINAL ANAESTHESIA
     Dates: start: 20140325
  2. BBRAUN SPINAL ANESTHESIA TRAY WITH HOSPIRA BUPIVACAINE 0.75% [Concomitant]

REACTIONS (1)
  - Drug ineffective [None]
